FAERS Safety Report 5948412-9 (Version None)
Quarter: 2008Q4

REPORT INFORMATION
  Report Type: 
  Country: None (occurrence: None)
  Receive Date: 20081111
  Receipt Date: 20081111
  Transmission Date: 20090506
  Serious: Yes (Hospitalization)
  Sender: FDA-Public Use
  Company Number: A0755757A

PATIENT
  Age: 69 Year
  Sex: Female
  Weight: 72 kg

DRUGS (7)
  1. ALLI [Suspect]
     Indication: WEIGHT CONTROL
     Route: 048
     Dates: start: 20080825
  2. ALBUTEROL [Concomitant]
     Indication: ASTHMA
     Route: 055
  3. ADVAIR DISKUS 100/50 [Concomitant]
     Indication: ASTHMA
     Route: 055
  4. ISOSORBIDE [Concomitant]
     Indication: CARDIAC DISORDER
     Route: 048
  5. METOPROLOL TARTRATE [Concomitant]
     Indication: HYPERTENSION
     Route: 048
  6. LIPITOR [Concomitant]
     Indication: BLOOD CHOLESTEROL INCREASED
     Route: 048
  7. BENICAR [Concomitant]
     Indication: HYPERTENSION

REACTIONS (4)
  - COMA [None]
  - CONFUSIONAL STATE [None]
  - FATIGUE [None]
  - RENAL FAILURE [None]
